FAERS Safety Report 4435236-7 (Version None)
Quarter: 2004Q3

REPORT INFORMATION
  Report Type: 
  Country: None (occurrence: None)
  Receive Date: 20040827
  Receipt Date: 20040729
  Transmission Date: 20050211
  Serious: Yes (Disabling, Other)
  Sender: FDA-Public Use
  Company Number: CH-GLAXOSMITHKLINE-B0341602A

PATIENT
  Age: 62 Year
  Sex: Male

DRUGS (11)
  1. AMOXICILLIN [Suspect]
     Indication: ENDOCARDITIS
     Route: 042
     Dates: start: 20040608, end: 20040622
  2. METRONIDAZOLE [Suspect]
     Dosage: 500MG THREE TIMES PER DAY
     Route: 042
     Dates: start: 20040620
  3. ROCEPHIN [Concomitant]
     Indication: ENDOCARDITIS
     Dosage: 2G PER DAY
     Route: 042
     Dates: start: 20040621
  4. GARAMYCIN [Concomitant]
     Indication: ENDOCARDITIS
     Dosage: 60MG PER DAY
     Route: 042
     Dates: start: 20040608, end: 20040615
  5. SINTROM [Concomitant]
     Indication: MITRAL VALVE REPLACEMENT
     Route: 048
     Dates: start: 20040625
  6. OMEPRAZOLE [Concomitant]
     Dosage: 1TAB PER DAY
     Route: 048
     Dates: start: 20040626
  7. LASIX [Concomitant]
     Indication: POSTOPERATIVE CARE
     Route: 042
     Dates: start: 20040616
  8. ACETAMINOPHEN [Concomitant]
     Route: 048
     Dates: start: 20040616
  9. DOBUTAMINE [Concomitant]
     Indication: ENDOCARDITIS
     Route: 042
     Dates: start: 20040618, end: 20040627
  10. ACTRAPID [Concomitant]
  11. LIQUEMINE [Concomitant]
     Indication: THROMBOSIS PROPHYLAXIS
     Route: 042
     Dates: start: 20040618, end: 20040706

REACTIONS (3)
  - ASTERIXIS [None]
  - ENCEPHALOPATHY [None]
  - TREMOR [None]
